FAERS Safety Report 13425498 (Version 6)
Quarter: 2017Q3

REPORT INFORMATION
  Report Type: Spontaneous
  Country: US (occurrence: US)
  Receive Date: 20170411
  Receipt Date: 20170911
  Transmission Date: 20171127
  Serious: Yes (Death, Congenital Anomaly)
  Sender: FDA-Public Use
  Company Number: PHEH2017US010112

PATIENT

DRUGS (3)
  1. GILENYA [Suspect]
     Active Substance: FINGOLIMOD HYDROCHLORIDE
     Indication: FOETAL EXPOSURE DURING PREGNANCY
     Dosage: MATERNAL DOSE: 0.5 MG, QD
     Route: 064
  2. PREDNISONE. [Suspect]
     Active Substance: PREDNISONE
     Indication: FOETAL EXPOSURE DURING PREGNANCY
     Dosage: MATERNAL DOSE: 130 MG, QD (60 MG, 40 MG, 20 MG AND 10 MG)
     Route: 064
  3. GADOLINIUM [Suspect]
     Active Substance: GADOLINIUM
     Indication: FOETAL EXPOSURE DURING PREGNANCY
     Dosage: MATERNAL DOSE (UNKNOWN)
     Route: 064

REACTIONS (4)
  - Heart disease congenital [Fatal]
  - Turner^s syndrome [Fatal]
  - Foetal exposure during pregnancy [Unknown]
  - Cytogenetic abnormality [Fatal]
